FAERS Safety Report 9188043 (Version 1)
Quarter: 2013Q1

REPORT INFORMATION
  Report Type: Spontaneous
  Country: US (occurrence: US)
  Receive Date: 20130325
  Receipt Date: 20130325
  Transmission Date: 20140127
  Serious: Yes (Other)
  Sender: FDA-Public Use
  Company Number: US-MYLANLABS-2012S1026474

PATIENT
  Age: 38 Year
  Sex: Female

DRUGS (3)
  1. FENTANYL TRANSDERMAL SYSTEM [Suspect]
     Indication: BACK PAIN
     Dosage: Q72H
     Route: 062
     Dates: start: 201209, end: 201212
  2. FENTANYL TRANSDERMAL SYSTEM [Suspect]
     Indication: BACK PAIN
     Dosage: Q72H
     Route: 062
     Dates: start: 201301
  3. OPIOIDS [Concomitant]
     Indication: BACK PAIN
     Dosage: TAKES UNKNOWN ORAL OPIOID WITH MYLAN FTS 75UG/HR
     Route: 048
     Dates: start: 201301

REACTIONS (3)
  - Drug ineffective [Recovered/Resolved]
  - Back pain [Recovered/Resolved]
  - Amnesia [Recovered/Resolved]
